FAERS Safety Report 17973351 (Version 1)
Quarter: 2020Q3

REPORT INFORMATION
  Report Type: Report from Study
  Country: AR (occurrence: AR)
  Receive Date: 20200702
  Receipt Date: 20200702
  Transmission Date: 20201103
  Serious: Yes (Disabling, Other)
  Sender: FDA-Public Use
  Company Number: NVSC2020AR185192

PATIENT
  Sex: Male

DRUGS (1)
  1. DIOVAN [Suspect]
     Active Substance: VALSARTAN
     Indication: BLOOD PRESSURE ABNORMAL
     Dosage: UNK (DAILY ONE IN THE MORNING AND HALF AT NIGHT)
     Route: 065
     Dates: start: 2013

REACTIONS (5)
  - Cerebrovascular accident [Recovering/Resolving]
  - Wrong technique in product usage process [Unknown]
  - Speech disorder [Unknown]
  - Diabetes mellitus [Unknown]
  - Cardiac disorder [Unknown]
